FAERS Safety Report 9390363 (Version 1)
Quarter: 2013Q3

REPORT INFORMATION
  Report Type: Spontaneous
  Country: IT (occurrence: IT)
  Receive Date: 20130709
  Receipt Date: 20130709
  Transmission Date: 20140515
  Serious: Yes (Hospitalization, Other)
  Sender: FDA-Public Use
  Company Number: IT-BRISTOL-MYERS SQUIBB COMPANY-19075621

PATIENT
  Age: 93 Year
  Sex: Female

DRUGS (4)
  1. COUMADIN TABS 5 MG [Suspect]
     Indication: DEEP VEIN THROMBOSIS
     Route: 048
     Dates: start: 20130123, end: 20130630
  2. ASCRIPTIN [Suspect]
     Indication: HYPERTENSION
     Route: 048
     Dates: start: 20130101, end: 20130630
  3. SUCRALFATE [Concomitant]
     Dosage: 1DF: 2 SACHETS DAILY
  4. ESOMEPRAZOLE [Concomitant]

REACTIONS (2)
  - Haematemesis [Recovered/Resolved]
  - Hiatus hernia [Unknown]
